FAERS Safety Report 5724162-9 (Version None)
Quarter: 2008Q2

REPORT INFORMATION
  Report Type: 
  Country: None (occurrence: None)
  Receive Date: 20080430
  Receipt Date: 20071001
  Transmission Date: 20081010
  Serious: No
  Sender: FDA-Public Use
  Company Number: US-ASTRAZENECA-2007UW22870

PATIENT

DRUGS (1)
  1. NEXIUM IV [Suspect]
     Route: 042

REACTIONS (1)
  - THROMBOCYTOPENIA [None]
